FAERS Safety Report 7405880-3 (Version None)
Quarter: 2011Q2

REPORT INFORMATION
  Report Type: 
  Country: None (occurrence: None)
  Receive Date: 20110411
  Receipt Date: 20110406
  Transmission Date: 20111010
  Serious: Yes (Death, Hospitalization)
  Sender: FDA-Public Use
  Company Number: BE-ROCHE-769988

PATIENT
  Age: 76 Year
  Sex: Female

DRUGS (1)
  1. ROACTEMRA [Suspect]
     Indication: RHEUMATOID ARTHRITIS
     Dosage: STARTED AND STOPPED IN 2011, DOSE FORM: INFUSION
     Route: 042

REACTIONS (1)
  - CEREBROVASCULAR ACCIDENT [None]
